FAERS Safety Report 18189636 (Version 1)
Quarter: 2020Q3

REPORT INFORMATION
  Report Type: Spontaneous
  Country: US (occurrence: US)
  Receive Date: 20200824
  Receipt Date: 20200824
  Transmission Date: 20201103
  Serious: No
  Sender: FDA-Public Use
  Company Number: US-AKRON, INC.-2088976

PATIENT
  Sex: Female

DRUGS (1)
  1. DRONABINOL CAPSULE CIII [Suspect]
     Active Substance: DRONABINOL
     Route: 048

REACTIONS (1)
  - Drug ineffective [Unknown]
